FAERS Safety Report 5560138-2 (Version None)
Quarter: 2007Q4

REPORT INFORMATION
  Report Type: 
  Country: None (occurrence: None)
  Receive Date: 20071214
  Receipt Date: 20071119
  Transmission Date: 20080405
  Serious: No
  Sender: FDA-Public Use
  Company Number: US-ABBOTT-07P-163-0422006-00

PATIENT
  Sex: Female
  Weight: 48.124 kg

DRUGS (6)
  1. HUMIRA [Suspect]
     Indication: CROHN'S DISEASE
     Route: 058
     Dates: start: 20070910
  2. HYDROCHLOROTHIAZIDE [Concomitant]
     Indication: HYPERTENSION
  3. HYDROCHLOROTHIAZIDE [Concomitant]
     Indication: ADVERSE DRUG REACTION
  4. VENLAFAXINE HCL [Concomitant]
     Indication: DEPRESSION
  5. FLUVOXAMINE MALEATE [Concomitant]
     Indication: DEPRESSION
  6. PROPRANOLOL [Concomitant]
     Indication: HYPERTENSION

REACTIONS (6)
  - HERPES ZOSTER [None]
  - LYMPHADENOPATHY [None]
  - PAIN [None]
  - PELVIC PAIN [None]
  - RESPIRATORY TRACT CONGESTION [None]
  - RHINORRHOEA [None]
